FAERS Safety Report 7512194-X (Version None)
Quarter: 2011Q2

REPORT INFORMATION
  Report Type: 
  Country: None (occurrence: None)
  Receive Date: 20110531
  Receipt Date: 20110523
  Transmission Date: 20111010
  Serious: Yes (Death, Life-Threatening, Other)
  Sender: FDA-Public Use
  Company Number: JP-PFIZER INC-2011087941

PATIENT
  Age: 79 Year
  Sex: Female

DRUGS (7)
  1. CRESTOR [Concomitant]
     Indication: DYSLIPIDAEMIA
     Dosage: 2.5 MG/DAY
     Route: 048
     Dates: start: 20110311, end: 20110330
  2. FRANDOL [Concomitant]
     Indication: ANGINA PECTORIS
     Dosage: 40 MG/DAY
     Route: 048
     Dates: start: 20110311, end: 20110330
  3. AMLODIPINE [Concomitant]
     Indication: HYPERTENSION
     Dosage: 10 MG/DAY
     Route: 048
     Dates: start: 20110311, end: 20110330
  4. ZOSYN [Suspect]
     Indication: URINARY TRACT INFECTION
     Dosage: 4.5 G, UNK
     Route: 041
     Dates: start: 20110330, end: 20110330
  5. SITAGLIPTIN PHOSPHATE [Concomitant]
     Indication: DIABETES MELLITUS
     Dosage: 100 MG/DAY
     Route: 048
     Dates: start: 20110311, end: 20110330
  6. OLMESARTAN MEDOXOMIL [Concomitant]
     Indication: HYPERTENSION
     Dosage: 40 MG/DAY
     Route: 048
     Dates: start: 20110311, end: 20110330
  7. AMARYL [Concomitant]
     Indication: DIABETES MELLITUS
     Dosage: 1 MG/DAY
     Route: 048
     Dates: start: 20110311, end: 20110330

REACTIONS (2)
  - ANAPHYLACTOID SHOCK [None]
  - SEPSIS [None]
